FAERS Safety Report 5017077-5 (Version None)
Quarter: 2006Q2

REPORT INFORMATION
  Report Type: 
  Country: None (occurrence: None)
  Receive Date: 20060526
  Receipt Date: 20060510
  Transmission Date: 20061013
  Serious: Yes (Hospitalization, Other)
  Sender: FDA-Public Use
  Company Number: US200605002632

PATIENT
  Age: 64 Year
  Sex: Female

DRUGS (6)
  1. CYMBALTA [Suspect]
     Indication: DEPRESSION
     Dates: start: 20050301, end: 20050701
  2. LORAZEPAM [Concomitant]
  3. PROGESTERONE [Concomitant]
  4. LITHIUM (LITHIUM) [Concomitant]
  5. FISH OIL (FISH OIL) [Concomitant]
  6. VITAMINS [Concomitant]

REACTIONS (7)
  - BLOOD PRESSURE FLUCTUATION [None]
  - BLOOD PRESSURE INCREASED [None]
  - CRYING [None]
  - DRUG INEFFECTIVE [None]
  - DRUG WITHDRAWAL SYNDROME [None]
  - FEAR [None]
  - MANIA [None]
